FAERS Safety Report 4335075-1 (Version None)
Quarter: 2004Q2

REPORT INFORMATION
  Report Type: 
  Country: None (occurrence: None)
  Receive Date: 20040405
  Receipt Date: 20040323
  Transmission Date: 20050107
  Serious: Yes (Hospitalization)
  Sender: FDA-Public Use
  Company Number: STA-AE-04-MTX-114

PATIENT
  Age: 61 Year
  Sex: Male

DRUGS (2)
  1. RHEUMATREX [Suspect]
     Indication: RHEUMATOID ARTHRITIS
     Dosage: 8 MG 1X PER 1 WK, ORAL
     Route: 048
  2. PREDNISOLONE [Concomitant]

REACTIONS (3)
  - BLOOD PRESSURE INCREASED [None]
  - PHARYNGITIS [None]
  - PYREXIA [None]
